FAERS Safety Report 19559477 (Version 1)
Quarter: 2021Q3

REPORT INFORMATION
  Report Type: Spontaneous
  Country: US (occurrence: US)
  Receive Date: 20210714
  Receipt Date: 20210714
  Transmission Date: 20211014
  Serious: No
  Sender: FDA-Public Use
  Company Number: US-SK LIFE SCIENCE, INC-SKPVG-2020-000190

PATIENT

DRUGS (6)
  1. FELBAMATE. [Concomitant]
     Active Substance: FELBAMATE
     Indication: PRODUCT USED FOR UNKNOWN INDICATION
     Dosage: UNKNOWN
     Route: 065
  2. ONFI [Suspect]
     Active Substance: CLOBAZAM
     Indication: PRODUCT USED FOR UNKNOWN INDICATION
     Dosage: 10 MG IN THE AM AND 20 AT QHS.
     Route: 065
  3. XCOPRI [Suspect]
     Active Substance: CENOBAMATE
     Dosage: 50 MILLIGRAM
     Route: 048
     Dates: start: 20200806
  4. XCOPRI [Suspect]
     Active Substance: CENOBAMATE
     Dosage: 200 MILLIGRAM, QD
     Route: 048
     Dates: start: 20200903
  5. XCOPRI [Suspect]
     Active Substance: CENOBAMATE
     Indication: FOCAL DYSCOGNITIVE SEIZURES
     Dosage: 100 MILLIGRAM, QD (DAILY IN THE MORNING)
     Route: 048
     Dates: start: 20200709
  6. KEPPRA [Suspect]
     Active Substance: LEVETIRACETAM
     Indication: PRODUCT USED FOR UNKNOWN INDICATION
     Dosage: 1500 MILLIGRAM, BID
     Route: 065

REACTIONS (4)
  - Fatigue [Recovering/Resolving]
  - Drug interaction [Recovering/Resolving]
  - Feeling drunk [Recovering/Resolving]
  - Somnolence [Recovering/Resolving]

NARRATIVE: CASE EVENT DATE: 20200709
